FAERS Safety Report 5866255-1 (Version None)
Quarter: 2008Q3

REPORT INFORMATION
  Report Type: 
  Country: None (occurrence: None)
  Receive Date: 20080829
  Receipt Date: 20080819
  Transmission Date: 20090109
  Serious: Yes (Other)
  Sender: FDA-Public Use
  Company Number: KR-PFIZER INC-2008070799

PATIENT

DRUGS (1)
  1. ZITHROMAX [Suspect]
     Route: 042

REACTIONS (3)
  - DRUG ADMINISTRATION ERROR [None]
  - INFUSION SITE ANAESTHESIA [None]
  - INFUSION SITE PAIN [None]
